FAERS Safety Report 5457495-4 (Version None)
Quarter: 2007Q3

REPORT INFORMATION
  Report Type: 
  Country: None (occurrence: None)
  Receive Date: 20070918
  Receipt Date: 20070906
  Transmission Date: 20080115
  Serious: Yes (Other)
  Sender: FDA-Public Use
  Company Number: US-PFIZER INC-2007075035

PATIENT

DRUGS (2)
  1. CHANTIX [Suspect]
  2. NALTREXONE [Interacting]

REACTIONS (2)
  - DRUG INTERACTION [None]
  - MULTIPLE SCLEROSIS [None]
